FAERS Safety Report 6240463-2 (Version None)
Quarter: 2009Q2

REPORT INFORMATION
  Report Type: 
  Country: None (occurrence: None)
  Receive Date: 20090623
  Receipt Date: 20090309
  Transmission Date: 20091009
  Serious: No
  Sender: FDA-Public Use
  Company Number: US-ASTRAZENECA-2009UW06141

PATIENT
  Age: 58 Year
  Sex: Male
  Weight: 68 kg

DRUGS (6)
  1. PULMICORT RESPULES [Suspect]
     Indication: CHRONIC OBSTRUCTIVE PULMONARY DISEASE
     Dosage: 1MG/2ML BID
     Route: 055
  2. ALBUTEROL [Concomitant]
  3. COMBIVENT [Concomitant]
  4. IPATROPIUM [Concomitant]
  5. DOXAZOSIN MESYLATE [Concomitant]
  6. MUCINEX [Concomitant]

REACTIONS (1)
  - PULMONARY CONGESTION [None]
